FAERS Safety Report 4266904-8 (Version None)
Quarter: 2004Q1

REPORT INFORMATION
  Report Type: 
  Country: None (occurrence: None)
  Receive Date: 20040108
  Receipt Date: 20040108
  Transmission Date: 20041129
  Serious: Yes (Congenital Anomaly, Other)
  Sender: FDA-Public Use
  Company Number: None

PATIENT
  Age: 23 Year
  Sex: Female

DRUGS (1)
  1. PREDNISOLONE ACETATE [Suspect]
     Indication: CORNEAL TRANSPLANT

REACTIONS (2)
  - CORNEAL GRAFT REJECTION [None]
  - PHARMACEUTICAL PRODUCT COMPLAINT [None]
